FAERS Safety Report 7351395-0 (Version None)
Quarter: 2011Q1

REPORT INFORMATION
  Report Type: 
  Country: None (occurrence: None)
  Receive Date: 20110314
  Receipt Date: 20110303
  Transmission Date: 20110831
  Serious: Yes (Hospitalization, Other)
  Sender: FDA-Public Use
  Company Number: US-ELI_LILLY_AND_COMPANY-US201103001630

PATIENT
  Sex: Female

DRUGS (13)
  1. MIRALAX [Concomitant]
  2. ZANTAC [Concomitant]
  3. CALCIUM +D3 [Concomitant]
  4. COREG CR [Concomitant]
  5. KLONOPIN [Concomitant]
  6. LEVOXYL [Concomitant]
  7. MULTI-VITAMIN [Concomitant]
  8. ANAESTHETICS [Concomitant]
  9. TOPAMAX [Concomitant]
  10. VITAMIN B6 [Concomitant]
  11. CYMBALTA [Concomitant]
  12. FLONASE [Concomitant]
  13. FORTEO [Suspect]
     Indication: OSTEOPOROSIS
     Dosage: 20 UG, DAILY (1/D)
     Dates: start: 20101217, end: 20110207

REACTIONS (18)
  - VIITH NERVE PARALYSIS [None]
  - NAUSEA [None]
  - MEMORY IMPAIRMENT [None]
  - SPEECH DISORDER [None]
  - HYPERSOMNIA [None]
  - ADVERSE REACTION [None]
  - PAIN IN EXTREMITY [None]
  - VISUAL ACUITY REDUCED [None]
  - DYSPEPSIA [None]
  - ANXIETY [None]
  - CHEST PAIN [None]
  - CONFUSIONAL STATE [None]
  - EYE MOVEMENT DISORDER [None]
  - GAIT DISTURBANCE [None]
  - TRANSIENT ISCHAEMIC ATTACK [None]
  - EROSIVE OESOPHAGITIS [None]
  - ULCER [None]
  - GASTRIC DISORDER [None]
